FAERS Safety Report 6132672-8 (Version None)
Quarter: 2009Q1

REPORT INFORMATION
  Report Type: 
  Country: None (occurrence: None)
  Receive Date: 20090324
  Receipt Date: 20090310
  Transmission Date: 20090719
  Serious: Yes (Other)
  Sender: FDA-Public Use
  Company Number: 232334K09USA

PATIENT
  Age: 36 Year
  Sex: Female
  Weight: 40 kg

DRUGS (2)
  1. REBIF [Suspect]
     Indication: MULTIPLE SCLEROSIS
     Dosage: 44 MCG, 3 IN 1 WEEKS, SUBCUTANEOUS
     Route: 058
     Dates: start: 20081215, end: 20090227
  2. TYLENOL (COTYLENOL) [Concomitant]

REACTIONS (2)
  - FACIAL PALSY [None]
  - HYPOAESTHESIA FACIAL [None]
